FAERS Safety Report 4762068-2 (Version None)
Quarter: 2005Q3

REPORT INFORMATION
  Report Type: 
  Country: None (occurrence: None)
  Receive Date: 20050831
  Receipt Date: 20050524
  Transmission Date: 20060218
  Serious: No
  Sender: FDA-Public Use
  Company Number: PHEH2005US05931

PATIENT
  Age: 76 Year
  Sex: Female

DRUGS (11)
  1. ENABLEX [Suspect]
     Indication: INCONTINENCE
     Dosage: 7.5 MG, QD;  15 MG, QD
     Dates: start: 20050401
  2. PROZAC [Concomitant]
  3. PANTOPRAZOLE SODIUM [Concomitant]
  4. ARTHROTEC [Concomitant]
  5. VYTONE (DIIODOHYDROXYQUINOLINE, HYDROCORTISONE) [Concomitant]
  6. DOXAZOSIN (DOXAZOSIN) [Concomitant]
  7. WARFARIN SODIUM [Concomitant]
  8. SPIRONOLACTONE [Concomitant]
  9. TAMOXIFEN (TAMOXIFEN) [Concomitant]
  10. NADOLOL [Concomitant]
  11. ZYRTEC [Concomitant]

REACTIONS (1)
  - URINARY INCONTINENCE [None]
